FAERS Safety Report 10260131 (Version 1)
Quarter: 2014Q2

REPORT INFORMATION
  Report Type: Report from Study
  Country: NL (occurrence: NL)
  Receive Date: 20140625
  Receipt Date: 20140625
  Transmission Date: 20141212
  Serious: Yes (Other)
  Sender: FDA-Public Use
  Company Number: NL-ABBVIE-14P-114-1249867-00

PATIENT
  Age: 36 Year
  Sex: Female
  Weight: 55 kg

DRUGS (2)
  1. LUCRIN [Suspect]
     Indication: BREAST CANCER FEMALE
     Route: 058
     Dates: start: 20121024
  2. TAMOXIFEN [Concomitant]
     Indication: BREAST CANCER FEMALE
     Route: 048
     Dates: start: 201210

REACTIONS (2)
  - Fear of disease [Unknown]
  - Back pain [Unknown]
